FAERS Safety Report 21486821 (Version 2)
Quarter: 2022Q4

REPORT INFORMATION
  Report Type: Spontaneous
  Country: US (occurrence: US)
  Receive Date: 20221020
  Receipt Date: 20221220
  Transmission Date: 20230113
  Serious: No
  Sender: FDA-Public Use
  Company Number: US-BRISTOL-MYERS SQUIBB COMPANY-2022-122343

PATIENT
  Age: 92 Year
  Sex: Male

DRUGS (2)
  1. POMALYST [Suspect]
     Active Substance: POMALIDOMIDE
     Indication: Plasma cell myeloma
     Dosage: 1 CAPSULE (4 MILLIGRAM) DAILY FOR 21 DAYS, THEN OFF 7 DAYS, 28 DAY CYCLE
     Route: 048
     Dates: start: 20191214
  2. POMALYST [Suspect]
     Active Substance: POMALIDOMIDE
     Dosage: FRE; 7 DAYS ON AND 28 DAYS CYCLE
     Route: 048

REACTIONS (2)
  - Dermatitis allergic [Unknown]
  - Off label use [Unknown]
